FAERS Safety Report 7885174-2 (Version None)
Quarter: 2011Q4

REPORT INFORMATION
  Report Type: 
  Country: None (occurrence: None)
  Receive Date: 20111102
  Receipt Date: 20101105
  Transmission Date: 20120403
  Serious: No
  Sender: FDA-Public Use
  Company Number: US-BAYER-201040430NA

PATIENT
  Age: 33 Year
  Sex: Male
  Weight: 72.562 kg

DRUGS (2)
  1. ULTRAVIST 150 [Suspect]
     Dosage: 109 ML AT 3.0 ML/SEC
     Route: 042
     Dates: start: 20101105, end: 20101105
  2. LEXAPRO [Concomitant]

REACTIONS (1)
  - SNEEZING [None]
